FAERS Safety Report 15030732 (Version 4)
Quarter: 2018Q3

REPORT INFORMATION
  Report Type: Spontaneous
  Country: BG (occurrence: BG)
  Receive Date: 20180619
  Receipt Date: 20180914
  Transmission Date: 20181010
  Serious: Yes (Other)
  Sender: FDA-Public Use
  Company Number: PHHY2018BG023316

PATIENT
  Age: 50 Year
  Sex: Male

DRUGS (9)
  1. BICALUTAMIDE. [Suspect]
     Active Substance: BICALUTAMIDE
     Indication: PROSTATE CANCER
     Dosage: UNK
     Route: 065
  2. ABIRATERONE [Suspect]
     Active Substance: ABIRATERONE
     Indication: PROSTATE CANCER
     Dosage: 100 MG, QD
     Route: 065
     Dates: start: 201705
  3. DENOSUMAB [Suspect]
     Active Substance: DENOSUMAB
     Indication: PROSTATE CANCER
     Dosage: UNK
     Route: 065
  4. LUTETIUM (LU 177) [Suspect]
     Active Substance: LUTETIUM LU-177
     Indication: PROSTATE CANCER
     Dosage: UNK, (4 APPLICATIONS, BEGIN THERAPY WHEN THERE ARE METASTASES IN THE SOFT TISSUES)
     Route: 065
  5. DOCETAXEL. [Suspect]
     Active Substance: DOCETAXEL
     Indication: PROSTATE CANCER
     Dosage: 5 COURSES;  BECAUSE OF THE RISE IN PSA, CHEMOTHERAPY HAS BEGUN
     Route: 065
  6. ABIRATERONE [Suspect]
     Active Substance: ABIRATERONE
     Dosage: 1000 MG, QD
     Route: 048
  7. RADIUM RA 223 DICHLORIDE [Suspect]
     Active Substance: RADIUM RA-223 DICHLORIDE
     Indication: PROSTATE CANCER
     Dosage: UNK
     Route: 042
     Dates: start: 20170418
  8. CABAZITAXEL [Suspect]
     Active Substance: CABAZITAXEL
     Indication: PROSTATE CANCER
     Dosage: UNK 12 COURSES
     Route: 065
     Dates: start: 20160519
  9. LEUPRORELIN [Suspect]
     Active Substance: LEUPROLIDE ACETATE
     Indication: PROSTATE CANCER
     Dosage: UNK
     Route: 065

REACTIONS (6)
  - Prostatic specific antigen increased [Unknown]
  - Malignant neoplasm progression [Unknown]
  - Drug ineffective [Unknown]
  - Prostate cancer [Unknown]
  - Prostate cancer recurrent [Unknown]
  - Drug resistance [Unknown]
